FAERS Safety Report 15069354 (Version 4)
Quarter: 2019Q1

REPORT INFORMATION
  Report Type: Spontaneous
  Country: US (occurrence: US)
  Receive Date: 20180626
  Receipt Date: 20190103
  Transmission Date: 20190417
  Serious: Yes (Death, Hospitalization)
  Sender: FDA-Public Use
  Company Number: US-ACTELION-A-US2018-174327

PATIENT
  Age: 51 Year
  Sex: Female
  Weight: 68.27 kg

DRUGS (2)
  1. VELETRI [Suspect]
     Active Substance: EPOPROSTENOL
     Indication: PULMONARY ARTERIAL HYPERTENSION
     Dosage: 27 NG/KG, PER MIN
     Route: 042
  2. VELETRI [Suspect]
     Active Substance: EPOPROSTENOL
     Dosage: 10 NG/KG, PER MIN
     Route: 042

REACTIONS (7)
  - Device dislocation [Unknown]
  - Sedation [Unknown]
  - Death [Fatal]
  - Dyspnoea [Unknown]
  - Catheter management [Unknown]
  - Tooth abscess [Unknown]
  - Mental status changes [Unknown]
